FAERS Safety Report 14673032 (Version 3)
Quarter: 2018Q2

REPORT INFORMATION
  Report Type: Report from Study
  Country: US (occurrence: US)
  Receive Date: 20180323
  Receipt Date: 20180618
  Transmission Date: 20180711
  Serious: Yes (Hospitalization)
  Sender: FDA-Public Use
  Company Number: US-ROCHE-2092889

PATIENT
  Age: 70 Year
  Sex: Female
  Weight: 46.31 kg

DRUGS (6)
  1. OCREVUS [Suspect]
     Active Substance: OCRELIZUMAB
     Indication: MULTIPLE SCLEROSIS
     Dosage: FITST SPLIT DOSE
     Route: 065
  2. BIOTIN [Concomitant]
     Active Substance: BIOTIN
     Dosage: 4 CAPSULE A DAY;ONGOING:YES
     Route: 065
  3. TEMAZEPAM. [Concomitant]
     Active Substance: TEMAZEPAM
     Route: 065
  4. ZALEPLON. [Concomitant]
     Active Substance: ZALEPLON
     Dosage: SLEEP
     Route: 065
  5. OCREVUS [Suspect]
     Active Substance: OCRELIZUMAB
     Dosage: SECOND SPLIT DOSE
     Route: 065
     Dates: start: 20170810
  6. BACLOFEN. [Concomitant]
     Active Substance: BACLOFEN
     Route: 065

REACTIONS (3)
  - Diverticulitis [Recovering/Resolving]
  - Malaise [Unknown]
  - Colonic abscess [Recovering/Resolving]

NARRATIVE: CASE EVENT DATE: 201801
